FAERS Safety Report 14565911 (Version 7)
Quarter: 2019Q3

REPORT INFORMATION
  Report Type: Report from Study
  Country: DE (occurrence: DE)
  Receive Date: 20180223
  Receipt Date: 20190822
  Transmission Date: 20191004
  Serious: Yes (Hospitalization, Other)
  Sender: FDA-Public Use
  Company Number: DE-BRISTOL-MYERS SQUIBB COMPANY-BMS-2017-121141

PATIENT
  Sex: Male
  Weight: 93.4 kg

DRUGS (16)
  1. NIVOLUMAB [Suspect]
     Active Substance: NIVOLUMAB
     Indication: PRODUCT USED FOR UNKNOWN INDICATION
     Dosage: 3 MILLIGRAM/KILOGRAM
     Route: 042
     Dates: start: 20171026, end: 20180228
  2. LYRICA [Concomitant]
     Active Substance: PREGABALIN
     Indication: SPINAL PAIN
     Dosage: 75 MG, BID
     Route: 048
  3. IBU RATIOPHARM 200 AKUT SCHMERZTABLETTEN [Concomitant]
     Indication: SPINAL PAIN
     Dosage: 600 MILLIGRAM, TID
     Route: 048
     Dates: start: 20171109
  4. BISOPROLOL-RATIOPHARM [Concomitant]
     Active Substance: BISOPROLOL
     Indication: ARRHYTHMIA
     Dosage: 5 MG, BID
     Route: 048
  5. OXYGESIC [Concomitant]
     Active Substance: OXYCODONE
     Indication: PRODUCT USED FOR UNKNOWN INDICATION
     Dosage: 10 MG, BID
     Route: 048
     Dates: start: 2017, end: 20171109
  6. ASS-RATIOPHARM [Concomitant]
     Active Substance: ASPIRIN
     Indication: PROPHYLAXIS
     Route: 065
  7. XGEVA [Concomitant]
     Active Substance: DENOSUMAB
     Indication: SPINAL PAIN
     Dosage: 120 MG, QMO
     Route: 058
     Dates: start: 20170308
  8. VOTRIENT [Suspect]
     Active Substance: PAZOPANIB HYDROCHLORIDE
     Indication: METASTATIC RENAL CELL CARCINOMA
     Dosage: 800 MILLIGRAM, QD
     Route: 048
     Dates: start: 20170207, end: 20170926
  9. OXYGESIC [Concomitant]
     Active Substance: OXYCODONE
     Indication: SPINAL PAIN
     Dosage: 20 MG, BID
     Route: 048
     Dates: start: 20171109
  10. IBUPROFEN. [Concomitant]
     Active Substance: IBUPROFEN
     Indication: SPINAL PAIN
     Dosage: 600 MG, PRN
     Route: 048
  11. CHOLECALCIFEROL [Concomitant]
     Active Substance: CHOLECALCIFEROL
     Indication: OSTEOSIS
     Dosage: 4000 IU, QD
     Route: 065
     Dates: start: 201703
  12. CALCIUM [Concomitant]
     Active Substance: CALCIUM
     Indication: OSTEOSIS
     Dosage: 0.5 MG, QD
     Route: 065
     Dates: start: 201703
  13. ASS-RATIOPHARM [Concomitant]
     Active Substance: ASPIRIN
     Indication: ARRHYTHMIA
     Dosage: 100 MG, QD
     Route: 048
  14. CALCIUM CITRATE [Concomitant]
     Active Substance: CALCIUM CITRATE
     Indication: PROPHYLAXIS
     Dosage: 600 MG, QD
     Route: 048
  15. NOVALGIN                           /00169801/ [Concomitant]
     Active Substance: ACETAMINOPHEN\CAFFEINE\PROPYPHENAZONE
     Indication: SPINAL PAIN
     Dosage: 500 MG, BID
     Route: 048
     Dates: start: 20180416
  16. NIVOLUMAB [Suspect]
     Active Substance: NIVOLUMAB
     Indication: RENAL CELL CARCINOMA
     Dosage: UNK
     Route: 042

REACTIONS (4)
  - Hypoventilation [Recovering/Resolving]
  - Haemothorax [Recovered/Resolved]
  - Blood pressure fluctuation [Not Recovered/Not Resolved]
  - Pneumothorax [Recovered/Resolved]

NARRATIVE: CASE EVENT DATE: 2017
